FAERS Safety Report 5910072-0 (Version None)
Quarter: 2008Q4

REPORT INFORMATION
  Report Type: 
  Country: None (occurrence: None)
  Receive Date: 20081007
  Receipt Date: 20070830
  Transmission Date: 20090506
  Serious: No
  Sender: FDA-Public Use
  Company Number: US-ASTRAZENECA-2007UW20670

PATIENT
  Age: 68 Year
  Sex: Female
  Weight: 92.5 kg

DRUGS (7)
  1. ARIMIDEX [Suspect]
     Indication: BREAST CANCER
     Dates: start: 20060101
  2. EFFEXOR XR [Concomitant]
  3. ADVAIR DISKUS 100/50 [Concomitant]
  4. TRAVATAN [Concomitant]
  5. SINGULAIR [Concomitant]
  6. NAPROSYN [Concomitant]
  7. ALBUTEROL [Concomitant]

REACTIONS (5)
  - HOT FLUSH [None]
  - NIGHT SWEATS [None]
  - PALPITATIONS [None]
  - RASH [None]
  - TEMPERATURE INTOLERANCE [None]
